FAERS Safety Report 15243618 (Version 1)
Quarter: 2018Q3

REPORT INFORMATION
  Report Type: Spontaneous
  Country: US (occurrence: US)
  Receive Date: 20180712
  Receipt Date: 20180712
  Transmission Date: 20181010
  Serious: Yes (Other)
  Sender: FDA-Public Use
  Company Number: None

PATIENT
  Age: 49 Year
  Sex: Female
  Weight: 58.05 kg

DRUGS (3)
  1. OCUVITE FOR 50+ [Concomitant]
  2. CHLORAPREP [Suspect]
     Active Substance: CHLORHEXIDINE GLUCONATE\ISOPROPYL ALCOHOL
     Indication: ANTIBIOTIC PROPHYLAXIS
     Dosage: ?          QUANTITY:1 SWAB;?
     Route: 061
     Dates: start: 20180706, end: 20180706
  3. CRANBERRY SUPPLEMENTS [Concomitant]

REACTIONS (2)
  - Injection site urticaria [None]
  - Urticaria [None]

NARRATIVE: CASE EVENT DATE: 20180707
